FAERS Safety Report 8292691 (Version 2)
Quarter: 2013Q4

REPORT INFORMATION
  Report Type: Spontaneous
  Country: JP (occurrence: JP)
  Receive Date: 20111215
  Receipt Date: 20131007
  Transmission Date: 20140711
  Serious: Yes (Hospitalization, Other)
  Sender: FDA-Public Use
  Company Number: PHHY2011JP106565

PATIENT
  Age: 2 Year
  Sex: Female

DRUGS (6)
  1. NEORAL [Suspect]
     Indication: PROPHYLAXIS AGAINST TRANSPLANT REJECTION
     Route: 048
  2. SIMULECT [Suspect]
     Indication: RENAL TRANSPLANT
     Route: 042
  3. BAXO [Concomitant]
  4. PREDNISONE [Concomitant]
     Dosage: UNK UKN, UNK
  5. MYCOPHENOLATE MOFETIL [Concomitant]
     Dosage: UNK UKN, UNK
  6. RITUXIMAB [Concomitant]
     Dosage: 375 MG/M2, UNK

REACTIONS (7)
  - Nephropathy toxic [Not Recovered/Not Resolved]
  - Renal impairment [Recovering/Resolving]
  - Focal segmental glomerulosclerosis [Not Recovered/Not Resolved]
  - Proteinuria [Recovering/Resolving]
  - Kidney transplant rejection [Not Recovered/Not Resolved]
  - Epstein-Barr virus infection [Unknown]
  - Cytomegalovirus infection [Recovered/Resolved]
